FAERS Safety Report 9914801 (Version 1)
Quarter: 2014Q1

REPORT INFORMATION
  Report Type: Spontaneous
  Country: CH (occurrence: CH)
  Receive Date: 20140220
  Receipt Date: 20140220
  Transmission Date: 20141002
  Serious: Yes (Other)
  Sender: FDA-Public Use
  Company Number: CH-ABBVIE-14P-151-1204432-00

PATIENT
  Age: 39 Year
  Sex: Female

DRUGS (7)
  1. KLACID [Suspect]
     Indication: SCARLET FEVER
     Route: 048
     Dates: start: 20131021, end: 20131030
  2. KLACID [Suspect]
     Indication: PROPHYLAXIS
  3. TRITTICO [Suspect]
     Indication: DEPRESSION
     Dosage: 25-125 MG
     Route: 048
     Dates: start: 20130924, end: 20131110
  4. SERTRALIN [Suspect]
     Indication: DEPRESSION
     Route: 048
     Dates: start: 20130924, end: 20131110
  5. SERTRALIN [Suspect]
     Indication: RESTLESSNESS
  6. SERTRALIN [Suspect]
     Indication: SLEEP DISORDER
  7. CIPRALEX [Concomitant]
     Indication: DEPRESSION
     Dosage: 4-10MG/D
     Route: 048
     Dates: start: 20131118

REACTIONS (4)
  - Libido decreased [Recovered/Resolved]
  - Dysgeusia [Recovered/Resolved]
  - Increased appetite [Recovered/Resolved]
  - Headache [Recovered/Resolved]
